FAERS Safety Report 10577782 (Version 1)
Quarter: 2014Q4

REPORT INFORMATION
  Report Type: Spontaneous
  Country: US (occurrence: US)
  Receive Date: 20141111
  Receipt Date: 20141111
  Transmission Date: 20150529
  Serious: No
  Sender: FDA-Public Use
  Company Number: US-MALLINCKRODT-T201401839

PATIENT
  Age: 73 Year
  Sex: Male

DRUGS (3)
  1. HYOSCINE [Concomitant]
     Active Substance: SCOPOLAMINE
     Indication: IRRITABLE BOWEL SYNDROME
     Dosage: UNK
  2. NEXIUM [Concomitant]
     Active Substance: ESOMEPRAZOLE MAGNESIUM
     Indication: IRRITABLE BOWEL SYNDROME
     Dosage: UNK
  3. PENNSAID [Suspect]
     Active Substance: DICLOFENAC SODIUM
     Indication: TENDONITIS
     Dosage: 2 PUMPS OVER 6-8 INCHES BID
     Route: 061
     Dates: start: 201404, end: 20140407

REACTIONS (4)
  - Product physical issue [Not Recovered/Not Resolved]
  - Off label use [Not Recovered/Not Resolved]
  - Drug ineffective [Not Recovered/Not Resolved]
  - Burning sensation [Recovered/Resolved]

NARRATIVE: CASE EVENT DATE: 201404
